FAERS Safety Report 15749371 (Version 1)
Quarter: 2018Q4

REPORT INFORMATION
  Report Type: Spontaneous
  Country: US (occurrence: US)
  Receive Date: 20181221
  Receipt Date: 20181221
  Transmission Date: 20190205
  Serious: No
  Sender: FDA-Public Use
  Company Number: US-PFIZER INC-2018520374

PATIENT
  Age: 58 Year
  Sex: Male
  Weight: 135.26 kg

DRUGS (1)
  1. VIAGRA [Suspect]
     Active Substance: SILDENAFIL CITRATE
     Indication: PRIAPISM
     Dosage: 100 MG, 1X/DAY
     Route: 048

REACTIONS (1)
  - Drug effective for unapproved indication [Unknown]
